FAERS Safety Report 7793459-3 (Version None)
Quarter: 2011Q4

REPORT INFORMATION
  Report Type: 
  Country: None (occurrence: None)
  Receive Date: 20111003
  Receipt Date: 20110929
  Transmission Date: 20120403
  Serious: Yes (Hospitalization, Other)
  Sender: FDA-Public Use
  Company Number: PHNR2007AU01899

PATIENT
  Sex: Male

DRUGS (11)
  1. ACIMAX [Concomitant]
     Dosage: 20MG,UNK
  2. TEGRETOL [Interacting]
     Indication: CONVULSION
     Dosage: 700 MG, UNK
     Dates: start: 19820101, end: 20100201
  3. ATENOLOL [Interacting]
     Dosage: 12.5 MG, UNK
  4. OMEPRAZOLE [Concomitant]
  5. TEGRETOL [Interacting]
     Dosage: 200MG MORNING AND 400MG NIGHT
  6. ATENOLOL [Suspect]
     Dosage: 50 MG, UNK
  7. KEPPRA [Concomitant]
     Dosage: 1000 MG, UNK
  8. NORVASC [Interacting]
     Dosage: 10 MG, UNK
  9. IRBESARTAN + HYDROCHLOROTHIAZIDE [Interacting]
     Indication: BLOOD PRESSURE
     Dates: start: 20070101
  10. AVAPRO [Concomitant]
     Dosage: 300MG,UNK
  11. NOTEN [Concomitant]
     Dosage: 50 MG, UNK

REACTIONS (10)
  - PAIN [None]
  - DIZZINESS [None]
  - CONVULSION [None]
  - BLOOD SODIUM DECREASED [None]
  - DRUG INTERACTION [None]
  - DRUG LEVEL INCREASED [None]
  - DRUG HYPERSENSITIVITY [None]
  - BLOOD PRESSURE DECREASED [None]
  - INSOMNIA [None]
  - HEART RATE DECREASED [None]
